FAERS Safety Report 9679520 (Version 2)
Quarter: 2013Q4

REPORT INFORMATION
  Report Type: Spontaneous
  Country: BE (occurrence: BE)
  Receive Date: 20131109
  Receipt Date: 20131119
  Transmission Date: 20140711
  Serious: Yes (Hospitalization, Other)
  Sender: FDA-Public Use
  Company Number: BE-AMGEN-BELSP2013078417

PATIENT
  Sex: Female
  Weight: 46 kg

DRUGS (3)
  1. XGEVA [Suspect]
     Indication: METASTASES TO BONE
     Dosage: UNK UNK, QMO
     Route: 065
     Dates: start: 201301, end: 201309
  2. LETROZOLE [Concomitant]
     Indication: METASTASES TO BONE
     Dosage: UNK UNK, QD
     Route: 048
     Dates: start: 201301
  3. HERCEPTIN [Concomitant]
     Dosage: UNK UNK, Q3WK
     Route: 042
     Dates: start: 201208

REACTIONS (2)
  - Femur fracture [Not Recovered/Not Resolved]
  - Pain [Unknown]
